FAERS Safety Report 8440571 (Version 5)
Quarter: 2014Q4

REPORT INFORMATION
  Report Type: Report from Study
  Country: US (occurrence: US)
  Receive Date: 20120305
  Receipt Date: 20141024
  Transmission Date: 20150529
  Serious: Yes (Disabling, Other)
  Sender: FDA-Public Use
  Company Number: US-PFIZER INC-2009277189

PATIENT
  Age: 81 Year
  Sex: Female
  Weight: 81.63 kg

DRUGS (13)
  1. LYRICA [Suspect]
     Active Substance: PREGABALIN
     Indication: NEUROPATHY PERIPHERAL
     Dosage: 300 MG, DAILY
     Route: 048
  2. LYRICA [Suspect]
     Active Substance: PREGABALIN
     Dosage: UNK, 4X/DAY
     Route: 048
  3. LYRICA [Suspect]
     Active Substance: PREGABALIN
     Dosage: UNK,
  4. NEURONTIN [Suspect]
     Active Substance: GABAPENTIN
     Indication: NEUROPATHY PERIPHERAL
     Dosage: UNK
  5. ISOSORBIDE [Concomitant]
     Active Substance: ISOSORBIDE
     Indication: CARDIAC DISORDER
     Dosage: UNK
  6. LYRICA [Suspect]
     Active Substance: PREGABALIN
     Dosage: 75 MG, 2X/DAY
     Route: 048
  7. LYRICA [Suspect]
     Active Substance: PREGABALIN
     Dosage: UNK
     Route: 048
     Dates: end: 201202
  8. BYSTOLIC [Concomitant]
     Active Substance: NEBIVOLOL HYDROCHLORIDE
     Dosage: 10 MG, 1X/DAY
  9. LYRICA [Suspect]
     Active Substance: PREGABALIN
     Indication: NEUROPATHY PERIPHERAL
     Dosage: 50 MG, 2X/DAY
     Route: 048
  10. LYRICA [Suspect]
     Active Substance: PREGABALIN
     Dosage: 100 MG, 2X/DAY
     Route: 048
  11. NEURONTIN [Suspect]
     Active Substance: GABAPENTIN
     Indication: NEUROPATHY PERIPHERAL
  12. TRAMADOL [Concomitant]
     Active Substance: TRAMADOL
     Dosage: UNK
  13. DIOVAN [Concomitant]
     Active Substance: VALSARTAN
     Indication: HYPERTENSION
     Dosage: UNK

REACTIONS (17)
  - Nasopharyngitis [Recovering/Resolving]
  - Visual impairment [Unknown]
  - Drug ineffective [Unknown]
  - Rash [Unknown]
  - Drug intolerance [Unknown]
  - Pain in extremity [Unknown]
  - Seasonal allergy [Recovering/Resolving]
  - Cataract [Unknown]
  - Glaucoma [Unknown]
  - Neuropathy peripheral [Unknown]
  - Hypersensitivity [Unknown]
  - Optic neuropathy [Unknown]
  - Memory impairment [Unknown]
  - Blindness [Unknown]
  - Optic nerve disorder [Unknown]
  - Influenza like illness [Recovering/Resolving]
  - Cough [Unknown]

NARRATIVE: CASE EVENT DATE: 200909
